FAERS Safety Report 6441931-0 (Version None)
Quarter: 2009Q4

REPORT INFORMATION
  Report Type: 
  Country: None (occurrence: None)
  Receive Date: 20091112
  Receipt Date: 20091103
  Transmission Date: 20100525
  Serious: Yes (Other)
  Sender: FDA-Public Use
  Company Number: SPV1-2009-02203

PATIENT
  Age: 45 Year
  Sex: Female
  Weight: 72.6 kg

DRUGS (4)
  1. LIALDA [Suspect]
     Indication: PROCTITIS ULCERATIVE
     Dosage: 2.4 G, 1X/DAY:QD, ORAL
     Route: 048
     Dates: start: 20081201, end: 20091001
  2. FISH OIL (FISH OIL) [Concomitant]
  3. CALCIUM (CALCIUM) [Concomitant]
  4. ANTIBIOTICS [Concomitant]

REACTIONS (2)
  - B-CELL LYMPHOMA [None]
  - OFF LABEL USE [None]
